FAERS Safety Report 7144988-7 (Version None)
Quarter: 2010Q4

REPORT INFORMATION
  Report Type: 
  Country: None (occurrence: None)
  Receive Date: 20101208
  Receipt Date: 20101129
  Transmission Date: 20110411
  Serious: Yes (Other)
  Sender: FDA-Public Use
  Company Number: JP-BRISTOL-MYERS SQUIBB COMPANY-15222367

PATIENT
  Age: 66 Year
  Sex: Female
  Weight: 34 kg

DRUGS (6)
  1. HYDREA [Suspect]
     Indication: POLYCYTHAEMIA VERA
     Dosage: 11JAN2004-17APR2005:500MG,18APR-15MAY2005:1000MG,16MAY05-23JAN06:750MG,24JAN2006-27JUL2010:1000MG
     Route: 048
     Dates: start: 20040611, end: 20100727
  2. ENDOXAN [Suspect]
     Indication: POLYCYTHAEMIA VERA
     Dates: start: 20100728, end: 20101104
  3. ASPIRIN [Concomitant]
     Route: 048
     Dates: start: 20040611, end: 20100727
  4. NORVASC [Concomitant]
     Route: 048
     Dates: start: 20040611, end: 20100727
  5. GASTER [Concomitant]
     Dosage: TABLET
     Route: 048
     Dates: start: 20040611, end: 20100727
  6. VERAPAMIL HCL [Concomitant]
     Route: 048
     Dates: start: 20040611, end: 20100727

REACTIONS (5)
  - ALOPECIA [None]
  - HYPERKERATOSIS PALMARIS AND PLANTARIS [None]
  - MALIGNANT NEOPLASM PROGRESSION [None]
  - NAIL DISORDER [None]
  - SKIN ULCER [None]
